FAERS Safety Report 12995078 (Version 2)
Quarter: 2016Q4

REPORT INFORMATION
  Report Type: Report from Study
  Country: US (occurrence: US)
  Receive Date: 20161202
  Receipt Date: 20161226
  Transmission Date: 20170207
  Serious: Yes (Death, Other)
  Sender: FDA-Public Use
  Company Number: US-AMGEN-USASL2016166684

PATIENT
  Sex: Female

DRUGS (1)
  1. PROLIA [Suspect]
     Active Substance: DENOSUMAB
     Indication: PRODUCT USED FOR UNKNOWN INDICATION
     Dosage: UNK
     Route: 065

REACTIONS (11)
  - Death [Fatal]
  - Injection site discomfort [Unknown]
  - Bone disorder [Unknown]
  - Lower limb fracture [Unknown]
  - Bedridden [Unknown]
  - Rotator cuff syndrome [Unknown]
  - Gait disturbance [Unknown]
  - Colitis ulcerative [Unknown]
  - Movement disorder [Unknown]
  - Immune system disorder [Unknown]
  - Musculoskeletal discomfort [Unknown]
